FAERS Safety Report 5375153-1 (Version None)
Quarter: 2007Q2

REPORT INFORMATION
  Report Type: 
  Country: None (occurrence: None)
  Receive Date: 20070629
  Receipt Date: 20070430
  Transmission Date: 20071010
  Serious: Yes (Other)
  Sender: FDA-Public Use
  Company Number: US-PURDUE-USA_2007_0027665

PATIENT
  Sex: Female
  Weight: 57 kg

DRUGS (2)
  1. OXYCONTIN [Suspect]
     Indication: PAIN
     Dosage: UNK, SEE TEXT
     Dates: start: 20000704, end: 20010101
  2. LORCET-HD [Concomitant]
     Indication: BREAKTHROUGH PAIN
     Dosage: 7.5 MG, UNK

REACTIONS (13)
  - ACTIVITIES OF DAILY LIVING IMPAIRED [None]
  - ANTEPARTUM HAEMORRHAGE [None]
  - DEPRESSED MOOD [None]
  - DRUG DEPENDENCE [None]
  - DRUG EXPOSURE DURING PREGNANCY [None]
  - DRUG WITHDRAWAL SYNDROME [None]
  - FORMICATION [None]
  - HIGH RISK PREGNANCY [None]
  - INSOMNIA [None]
  - MALAISE [None]
  - PAIN [None]
  - TOOTH DISORDER [None]
  - VOMITING [None]
